FAERS Safety Report 24546358 (Version 1)
Quarter: 2024Q4

REPORT INFORMATION
  Report Type: Spontaneous
  Country: ES (occurrence: ES)
  Receive Date: 20241024
  Receipt Date: 20241024
  Transmission Date: 20250114
  Serious: Yes (Life-Threatening)
  Sender: SANOFI AVENTIS
  Company Number: None

PATIENT
  Age: 58 Year
  Sex: Male
  Weight: 82 kg

DRUGS (2)
  1. ZOLPIDEM TARTRATE [Suspect]
     Active Substance: ZOLPIDEM TARTRATE
     Indication: Insomnia
     Dosage: 10 MG
     Route: 048
     Dates: start: 20201005, end: 20230919
  2. SILDENAFILO [SILDENAFIL CITRATE] [Concomitant]
     Dosage: UNK

REACTIONS (1)
  - Dissociative amnesia [Recovered/Resolved]

NARRATIVE: CASE EVENT DATE: 20230915
